FAERS Safety Report 6479667-2 (Version None)
Quarter: 2009Q4

REPORT INFORMATION
  Report Type: 
  Country: None (occurrence: None)
  Receive Date: 20091208
  Receipt Date: 20091130
  Transmission Date: 20100525
  Serious: Yes (Hospitalization)
  Sender: FDA-Public Use
  Company Number: NO-ASTRAZENECA-2009SE30012

PATIENT
  Age: 15 Year
  Sex: Male

DRUGS (7)
  1. PROPOFOL [Suspect]
     Indication: INDUCTION OF ANAESTHESIA
     Route: 042
     Dates: start: 20091111, end: 20091111
  2. REMIFENTANIL [Interacting]
     Indication: INDUCTION OF ANAESTHESIA
     Route: 042
     Dates: start: 20091111, end: 20091111
  3. VANCOMYCIN [Interacting]
     Indication: ENDOCARDITIS PROPHYLAXIS
     Route: 042
     Dates: start: 20091111, end: 20091111
  4. FENTANYL [Interacting]
     Indication: PREMEDICATION
     Route: 042
     Dates: start: 20091111, end: 20091111
  5. MIDAZOLAM HCL [Concomitant]
     Indication: PREMEDICATION
     Route: 042
     Dates: start: 20091111, end: 20091111
  6. ATROPINE [Concomitant]
     Indication: PREMEDICATION
     Route: 042
     Dates: start: 20091111, end: 20091111
  7. VIVAL [Concomitant]
     Indication: PREMEDICATION
     Route: 048
     Dates: start: 20091111, end: 20091111

REACTIONS (3)
  - FLUSHING [None]
  - HYPOTENSION [None]
  - URTICARIA [None]
